FAERS Safety Report 20378317 (Version 1)
Quarter: 2022Q1

REPORT INFORMATION
  Report Type: Spontaneous
  Country: US (occurrence: US)
  Receive Date: 20220126
  Receipt Date: 20220126
  Transmission Date: 20220423
  Serious: No
  Sender: FDA-Public Use
  Company Number: US-SA-SAC20220123000106

PATIENT
  Age: 58 Year
  Sex: Female

DRUGS (3)
  1. KEVZARA [Suspect]
     Active Substance: SARILUMAB
     Indication: Rheumatoid arthritis
     Dosage: 162 MG
     Route: 058
     Dates: start: 202110
  2. ATORVASTATIN [Suspect]
     Active Substance: ATORVASTATIN
  3. DULOXETINE [Concomitant]
     Active Substance: DULOXETINE

REACTIONS (1)
  - Alopecia [Unknown]

NARRATIVE: CASE EVENT DATE: 20211201
